FAERS Safety Report 8932939 (Version 2)
Quarter: 2012Q4

REPORT INFORMATION
  Report Type: Spontaneous
  Country: GB (occurrence: None)
  Receive Date: 20121119
  Receipt Date: 20121128
  Transmission Date: 20130627
  Serious: Yes (Other)
  Sender: FDA-Public Use
  Company Number: AUR-APL-2012-04816

PATIENT
  Age: 27 Year
  Sex: Male

DRUGS (2)
  1. AMOXICILLIN (AMOXICILLIN) [Suspect]
     Indication: CHEST INFECTION
     Route: 048
     Dates: start: 20121019, end: 20121020
  2. VENTOLIN [Suspect]
     Indication: CHEST INFECTION
     Route: 048
     Dates: start: 20121019, end: 20121020

REACTIONS (2)
  - Rash generalised [None]
  - Rash pruritic [None]
